FAERS Safety Report 9440689 (Version 2)
Quarter: 2013Q3

REPORT INFORMATION
  Report Type: Spontaneous
  Country: FR (occurrence: FR)
  Receive Date: 20130805
  Receipt Date: 20130813
  Transmission Date: 20140515
  Serious: Yes (Hospitalization)
  Sender: FDA-Public Use
  Company Number: FR-PFIZER INC-2013223310

PATIENT
  Age: 74 Year
  Sex: Male

DRUGS (3)
  1. ZOXAN [Suspect]
     Indication: BENIGN PROSTATIC HYPERPLASIA
     Dosage: 4 MG, UNK
     Route: 048
     Dates: end: 201010
  2. HYZAAR [Concomitant]
     Indication: HYPERTENSION
     Dosage: 1 DF, 1X/DAY
     Dates: end: 201010
  3. HYZAAR [Concomitant]
     Dosage: UNK
     Dates: start: 201011

REACTIONS (1)
  - Ischaemic stroke [Recovered/Resolved with Sequelae]
